FAERS Safety Report 21235301 (Version 3)
Quarter: 2024Q3

REPORT INFORMATION
  Report Type: Spontaneous
  Country: US (occurrence: US)
  Receive Date: 20220821
  Receipt Date: 20240808
  Transmission Date: 20241016
  Serious: Yes (Hospitalization, Other)
  Sender: SANOFI AVENTIS
  Company Number: US-SA-SAC20220818001917

PATIENT
  Age: 66 Year
  Sex: Male
  Weight: 87.99 kg

DRUGS (21)
  1. DUPIXENT [Suspect]
     Active Substance: DUPILUMAB
     Indication: Asthma
     Dosage: 300 MG, QOW
     Route: 058
     Dates: start: 201908
  2. DUPIXENT [Suspect]
     Active Substance: DUPILUMAB
     Indication: Bronchiectasis
  3. DUPIXENT [Suspect]
     Active Substance: DUPILUMAB
     Indication: Dermatitis
  4. TOBRAMYCIN [Concomitant]
     Active Substance: TOBRAMYCIN\TOBRAMYCIN SULFATE
  5. ESOMEPRAZOLE MAGNESIUM [Concomitant]
     Active Substance: ESOMEPRAZOLE MAGNESIUM
  6. FOLIC ACID [Concomitant]
     Active Substance: FOLIC ACID
  7. LYCOPENE [Concomitant]
     Active Substance: LYCOPENE
  8. VITAMINS [Concomitant]
     Active Substance: VITAMINS
  9. NASACORT [Concomitant]
     Active Substance: TRIAMCINOLONE ACETONIDE
  10. PREDNISONE [Concomitant]
     Active Substance: PREDNISONE
  11. VITAMIN K [Concomitant]
     Active Substance: PHYTONADIONE
  12. XOLAIR [Concomitant]
     Active Substance: OMALIZUMAB
  13. ZITHROMAX [Concomitant]
     Active Substance: AZITHROMYCIN DIHYDRATE
  14. DALIRESP [Concomitant]
     Active Substance: ROFLUMILAST
  15. FUROSEMIDE [Concomitant]
     Active Substance: FUROSEMIDE
  16. TRELEGY ELLIPTA [Concomitant]
     Active Substance: FLUTICASONE FUROATE\UMECLIDINIUM BROMIDE\VILANTEROL TRIFENATATE
  17. ALBUTEROL SULFATE [Concomitant]
     Active Substance: ALBUTEROL SULFATE
  18. BUDESONIDE [Concomitant]
     Active Substance: BUDESONIDE
  19. SODIUM CHLORIDE [Concomitant]
     Active Substance: SODIUM CHLORIDE
  20. PROSTATEP [Concomitant]
  21. COENZYME Q10 [Concomitant]
     Active Substance: DIETARY SUPPLEMENT\UBIDECARENONE

REACTIONS (4)
  - Cystic fibrosis [Unknown]
  - Pneumonia [Unknown]
  - Infection [Unknown]
  - Product use in unapproved indication [Unknown]

NARRATIVE: CASE EVENT DATE: 20190801
